FAERS Safety Report 8432015-0 (Version None)
Quarter: 2012Q2

REPORT INFORMATION
  Report Type: 
  Country: None (occurrence: None)
  Receive Date: 20120613
  Receipt Date: 20111222
  Transmission Date: 20120825
  Serious: No
  Sender: FDA-Public Use
  Company Number: US-ASTRAZENECA-2011SE00385

PATIENT
  Age: 62 Year
  Sex: Female

DRUGS (5)
  1. RHINOCORT [Suspect]
     Route: 045
  2. NEXIUM [Suspect]
     Route: 048
  3. PREDNISONE TAB [Suspect]
     Route: 065
  4. LIPITOR [Concomitant]
  5. TOPROL-XL [Suspect]
     Route: 048

REACTIONS (22)
  - BRONCHITIS CHRONIC [None]
  - LUNG DISORDER [None]
  - SINUSITIS [None]
  - ULCER [None]
  - NASOPHARYNGITIS [None]
  - ARTHRITIS [None]
  - BLOOD CHOLESTEROL INCREASED [None]
  - DYSPNOEA [None]
  - DIARRHOEA [None]
  - DYSPHONIA [None]
  - REGURGITATION [None]
  - INSOMNIA [None]
  - ASTHENIA [None]
  - SOMNOLENCE [None]
  - OROPHARYNGEAL PAIN [None]
  - GASTRIC ULCER [None]
  - MALAISE [None]
  - COUGH [None]
  - GASTROOESOPHAGEAL REFLUX DISEASE [None]
  - CHRONIC OBSTRUCTIVE PULMONARY DISEASE [None]
  - DRUG DOSE OMISSION [None]
  - DRUG INEFFECTIVE [None]
